FAERS Safety Report 8335910-6 (Version None)
Quarter: 2012Q2

REPORT INFORMATION
  Report Type: 
  Country: None (occurrence: None)
  Receive Date: 20120504
  Receipt Date: 20120501
  Transmission Date: 20120825
  Serious: Yes (Other)
  Sender: FDA-Public Use
  Company Number: US-PFIZER INC-2012107429

PATIENT
  Sex: Male
  Weight: 99.773 kg

DRUGS (10)
  1. PAXIL [Concomitant]
     Indication: DEPRESSION
     Dosage: UNK
  2. PROVIGIL [Concomitant]
     Indication: DEPRESSION
     Dosage: UNK
  3. LAMICTAL [Concomitant]
     Indication: DEPRESSION
     Dosage: UNK
  4. ARMODAFINIL [Concomitant]
     Indication: SLEEP APNOEA SYNDROME
     Dosage: UNK
  5. WELLBUTRIN [Concomitant]
     Indication: DEPRESSION
     Dosage: UNK
  6. CELEXA [Concomitant]
     Indication: DEPRESSION
     Dosage: UNK
  7. PREVACID [Concomitant]
     Dosage: UNK
  8. VIAGRA [Suspect]
     Indication: ERECTILE DYSFUNCTION
     Dosage: 50 MG, AS NEEDED
     Route: 048
  9. AFRIN [Concomitant]
     Indication: NASAL CONGESTION
     Dosage: UNK
     Route: 045
  10. EFFEXOR [Concomitant]
     Indication: DEPRESSION
     Dosage: UNK

REACTIONS (1)
  - DEPRESSION [None]
